FAERS Safety Report 18364296 (Version 2)
Quarter: 2020Q4

REPORT INFORMATION
  Report Type: Spontaneous
  Country: SE (occurrence: SE)
  Receive Date: 20201009
  Receipt Date: 20201022
  Transmission Date: 20210114
  Serious: Yes (Other)
  Sender: FDA-Public Use
  Company Number: SE-REGENERON PHARMACEUTICALS, INC.-2020-81191

PATIENT

DRUGS (2)
  1. EYLEA [Suspect]
     Active Substance: AFLIBERCEPT
     Dosage: LAST INJECTION RECEIVED BEFORE THE EVENT, OS
     Dates: start: 20200915, end: 20200915
  2. EYLEA [Suspect]
     Active Substance: AFLIBERCEPT
     Indication: DIABETIC RETINAL OEDEMA
     Dosage: RECEIVED A TOTAL OF 4 DOSES BEFORE THE EVENT

REACTIONS (2)
  - Endophthalmitis [Unknown]
  - Blindness [Unknown]

NARRATIVE: CASE EVENT DATE: 20200921
